FAERS Safety Report 5425675-X (Version None)
Quarter: 2007Q3

REPORT INFORMATION
  Report Type: 
  Country: None (occurrence: None)
  Receive Date: 20070824
  Receipt Date: 20070815
  Transmission Date: 20080115
  Serious: Yes (Other)
  Sender: FDA-Public Use
  Company Number: US-PFIZER INC-2007068528

PATIENT
  Sex: Female
  Weight: 76.363 kg

DRUGS (6)
  1. CHANTIX [Suspect]
     Indication: SMOKING CESSATION THERAPY
  2. SPIRIVA [Concomitant]
  3. VENTOLIN [Concomitant]
  4. ADVAIR DISKUS 100/50 [Concomitant]
  5. ALL OTHER THERAPEUTIC PRODUCTS [Concomitant]
     Indication: BLOOD PRESSURE
  6. XANAX [Concomitant]

REACTIONS (7)
  - ABNORMAL DREAMS [None]
  - CHRONIC OBSTRUCTIVE PULMONARY DISEASE [None]
  - DYSPNOEA [None]
  - IMPAIRED WORK ABILITY [None]
  - LUNG DISORDER [None]
  - NAUSEA [None]
  - POOR QUALITY SLEEP [None]
